FAERS Safety Report 13399432 (Version 1)
Quarter: 2017Q2

REPORT INFORMATION
  Report Type: Spontaneous
  Country: US (occurrence: US)
  Receive Date: 20170403
  Receipt Date: 20170403
  Transmission Date: 20170830
  Serious: Yes (Death)
  Sender: FDA-Public Use
  Company Number: None

PATIENT
  Age: 57 Year
  Sex: Male

DRUGS (1)
  1. OSELTAMIVIR PHOSPHATE 75MG CAP ALVO (FOR TAMIFLU) [Suspect]
     Active Substance: OSELTAMIVIR PHOSPHATE
     Indication: INFLUENZA
     Dates: start: 20170316, end: 20170321

REACTIONS (2)
  - Abnormal behaviour [None]
  - Completed suicide [None]

NARRATIVE: CASE EVENT DATE: 20170320
